FAERS Safety Report 5268679-2 (Version None)
Quarter: 2007Q1

REPORT INFORMATION
  Report Type: 
  Country: None (occurrence: None)
  Receive Date: 20070314
  Receipt Date: 20070310
  Transmission Date: 20070707
  Serious: Yes (Disabling, Other)
  Sender: FDA-Public Use
  Company Number: 235888

PATIENT
  Age: 60 Year
  Sex: Male
  Weight: 127 kg

DRUGS (2)
  1. NUTROPIN AQ [Suspect]
     Indication: GROWTH HORMONE DEFICIENCY
     Dosage: 0.4 MG, QD, SUBCUTANEOUS
     Route: 058
     Dates: start: 20061018, end: 20070101
  2. DIAVAN (DIETARY SUPPLEMENT) (ASCORBIC ACID, CHROMIUM NOS, SELENIUM NOS [Concomitant]

REACTIONS (3)
  - JOINT SWELLING [None]
  - OEDEMA PERIPHERAL [None]
  - SARCOIDOSIS [None]
